FAERS Safety Report 8766845 (Version 1)
Quarter: 2012Q4

REPORT INFORMATION
  Report Type: 
  Country: BR (occurrence: BR)
  Receive Date: 20120904
  Receipt Date: 20120904
  Transmission Date: 20130627
  Serious: Yes (Other)
  Sender: FDA-Public Use
  Company Number: PHHY2012BR076040

PATIENT
  Age: 86 Year
  Sex: Male

DRUGS (6)
  1. FORASEQ [Suspect]
     Dosage: UNK UKN, UNK
  2. ACETYLCYSTEINE [Concomitant]
     Dosage: 600 mg, daily
  3. OXYGEN THERAPY [Concomitant]
     Dosage: UNK UKN, UNK
  4. INDACATEROL [Concomitant]
     Dosage: 150 ug, daily
  5. ROFLUMILAST [Concomitant]
     Dosage: 500 mg, daily
  6. BUDESONIDE [Concomitant]
     Dosage: 400 ug, UNK

REACTIONS (6)
  - Acute respiratory failure [Recovering/Resolving]
  - Chronic obstructive pulmonary disease [Recovering/Resolving]
  - Dyspnoea [Recovering/Resolving]
  - Forced expiratory volume decreased [Recovering/Resolving]
  - Vital capacity decreased [Unknown]
  - Oxygen consumption increased [Recovering/Resolving]
